FAERS Safety Report 16882022 (Version 1)
Quarter: 2019Q4

REPORT INFORMATION
  Report Type: Spontaneous
  Country: US (occurrence: US)
  Receive Date: 20191003
  Receipt Date: 20191003
  Transmission Date: 20200122
  Serious: Yes (Other)
  Sender: FDA-Public Use
  Company Number: US-FRESENIUS KABI-FK201910797

PATIENT

DRUGS (2)
  1. CISPLATIN (MANUFACTURER UNKNOWN) [Suspect]
     Active Substance: CISPLATIN
     Indication: SOFT TISSUE SARCOMA
     Dosage: OVER 3-5 MINUTES (GIVEN 20 TO 30 MINUTES PRIOR TO RADIATION) (5 DAYS) FOR 6 WEEKS
     Route: 042
  2. DOXORUBICIN (MANUFACTURER UNKNOWN) [Suspect]
     Active Substance: DOXORUBICIN
     Indication: SOFT TISSUE SARCOMA
     Dosage: OVER 24 HOURS ON DAYS 1-4, WEEKS 1 AND 4
     Route: 041

REACTIONS (1)
  - Haematotoxicity [Unknown]
